FAERS Safety Report 18267348 (Version 1)
Quarter: 2020Q3

REPORT INFORMATION
  Report Type: Spontaneous
  Country: US (occurrence: US)
  Receive Date: 20200915
  Receipt Date: 20200915
  Transmission Date: 20201103
  Serious: Yes (Life-Threatening, Hospitalization, Other)
  Sender: FDA-Public Use
  Company Number: US-SCIEGEN-2020SCILIT00287

PATIENT

DRUGS (10)
  1. QUETIAPINE. [Suspect]
     Active Substance: QUETIAPINE
     Indication: PRODUCT USED FOR UNKNOWN INDICATION
     Route: 065
  2. PHENYLEPHRINE [Interacting]
     Active Substance: PHENYLEPHRINE HYDROCHLORIDE
     Indication: INTENTIONAL OVERDOSE
     Route: 065
  3. PHENYLEPHRINE [Interacting]
     Active Substance: PHENYLEPHRINE HYDROCHLORIDE
     Indication: HYPOTENSION
  4. DOXYCYCLINE. [Concomitant]
     Active Substance: DOXYCYCLINE
     Indication: PRODUCT USED FOR UNKNOWN INDICATION
     Route: 065
  5. NOREPINEPHRINE. [Interacting]
     Active Substance: NOREPINEPHRINE
     Indication: INTENTIONAL OVERDOSE
     Route: 065
  6. NOREPINEPHRINE. [Interacting]
     Active Substance: NOREPINEPHRINE
     Indication: HYPOTENSION
  7. NOREPINEPHRINE. [Interacting]
     Active Substance: NOREPINEPHRINE
     Indication: UNRESPONSIVE TO STIMULI
  8. PHENYLEPHRINE [Interacting]
     Active Substance: PHENYLEPHRINE HYDROCHLORIDE
     Indication: UNRESPONSIVE TO STIMULI
  9. PHYSOSTIGMINE [Interacting]
     Active Substance: PHYSOSTIGMINE
     Indication: DELIRIUM
     Route: 065
  10. FAT EMULSION NOS [Interacting]
     Active Substance: EGG PHOSPHOLIPIDS\SAFFLOWER OIL\SOYBEAN OIL
     Indication: UNRESPONSIVE TO STIMULI
     Route: 065

REACTIONS (5)
  - Intentional overdose [Unknown]
  - Unresponsive to stimuli [Recovering/Resolving]
  - Circulatory collapse [Recovering/Resolving]
  - Delirium [Not Recovered/Not Resolved]
  - Hypotension [Recovering/Resolving]
